FAERS Safety Report 24647513 (Version 1)
Quarter: 2024Q4

REPORT INFORMATION
  Report Type: Spontaneous
  Country: US (occurrence: None)
  Receive Date: 20241121
  Receipt Date: 20241121
  Transmission Date: 20250114
  Serious: Yes (Life-Threatening)
  Sender: Public
  Company Number: None

PATIENT
  Age: 84 Year
  Sex: Male
  Weight: 107 kg

DRUGS (2)
  1. CEFAZOLIN [Suspect]
     Active Substance: CEFAZOLIN
     Indication: Cellulitis
     Dosage: FREQUENCY : 3 TIMES A DAY;?
     Route: 042
     Dates: start: 20241112, end: 20241114
  2. APIXABAN [Suspect]
     Active Substance: APIXABAN

REACTIONS (9)
  - Platelet count decreased [None]
  - Localised infection [None]
  - Erythema [None]
  - Treatment failure [None]
  - Epistaxis [None]
  - Palpitations [None]
  - Atrial flutter [None]
  - Dyspnoea exertional [None]
  - Therapy interrupted [None]

NARRATIVE: CASE EVENT DATE: 20241114
